FAERS Safety Report 16853447 (Version 1)
Quarter: 2019Q3

REPORT INFORMATION
  Report Type: Spontaneous
  Country: US (occurrence: US)
  Receive Date: 20190925
  Receipt Date: 20190925
  Transmission Date: 20191005
  Serious: No
  Sender: FDA-Public Use
  Company Number: US-GLAXOSMITHKLINE-US2019169822

PATIENT
  Sex: Female

DRUGS (2)
  1. FLONASE [Suspect]
     Active Substance: FLUTICASONE PROPIONATE
     Indication: NASAL CONGESTION
  2. FLONASE [Suspect]
     Active Substance: FLUTICASONE PROPIONATE
     Indication: EAR DISORDER
     Dosage: UNK
     Dates: start: 20190917

REACTIONS (1)
  - Off label use [Unknown]

NARRATIVE: CASE EVENT DATE: 20190917
